FAERS Safety Report 9267898 (Version 1)
Quarter: 2013Q2

REPORT INFORMATION
  Report Type: Spontaneous
  Country: GB (occurrence: GB)
  Receive Date: 20130502
  Receipt Date: 20130502
  Transmission Date: 20140414
  Serious: Yes (Life-Threatening, Hospitalization)
  Sender: FDA-Public Use
  Company Number: GB-OTSUKA-EU-2013-10112

PATIENT
  Age: 90 Year
  Sex: Female

DRUGS (12)
  1. CILOSTAZOL [Suspect]
     Dosage: 100 MG MILLIGRAM(S), BID
     Route: 048
  2. ASPIRIN [Suspect]
     Dosage: 75 MG MILLIGRAM(S), DAILY DOSE
     Route: 048
  3. XARELTO [Suspect]
     Indication: THROMBOSIS PROPHYLAXIS
     Dosage: 10 MG MILLIGRAM(S), DAILY DOSE
     Route: 048
     Dates: end: 20130411
  4. ATORVASTATIN [Concomitant]
     Dosage: 10 MG MILLIGRAM(S), DAILY DOSE
     Route: 048
  5. CODEINE [Concomitant]
     Dosage: 30 MG MILLIGRAM(S), UNKNOWN
     Route: 048
  6. FUROSEMIDE [Concomitant]
     Dosage: 40 MG MILLIGRAM(S), DAILY DOSE
     Route: 048
  7. LACIDIPINE [Concomitant]
     Dosage: 2 MG MILLIGRAM(S), DAILY DOSE
     Route: 048
  8. LACTULOSE [Concomitant]
     Indication: CONSTIPATION
     Dosage: 15 ML MILLILITRE(S), BID
     Route: 048
  9. NICORANDIL [Concomitant]
     Dosage: 20 MG MILLIGRAM(S), BID
     Route: 048
  10. PARACETAMOL [Concomitant]
     Dosage: 1 G GRAM(S), TID
     Route: 048
  11. RAMIPRIL [Concomitant]
     Dosage: 1.25 MG MILLIGRAM(S), DAILY DOSE
     Route: 048
  12. SENNA [Concomitant]
     Indication: CONSTIPATION
     Dosage: 15 MG MILLIGRAM(S), DAILY DOSE
     Route: 048

REACTIONS (4)
  - Faeces discoloured [Recovered/Resolved with Sequelae]
  - Gastrointestinal haemorrhage [Unknown]
  - Haemoglobin decreased [Recovered/Resolved with Sequelae]
  - Balance disorder [Unknown]
